FAERS Safety Report 6731314-8 (Version None)
Quarter: 2010Q2

REPORT INFORMATION
  Report Type: 
  Country: None (occurrence: None)
  Receive Date: 20100517
  Receipt Date: 20100517
  Transmission Date: 20101027
  Serious: Yes (Other)
  Sender: FDA-Public Use
  Company Number: None

PATIENT
  Age: 26 Year
  Sex: Female
  Weight: 102.0593 kg

DRUGS (1)
  1. NUVARING [Suspect]
     Indication: CONTRACEPTION
     Dosage: ONE NUVARING EVERY THREE WEEKS VAG
     Route: 067
     Dates: start: 20090101, end: 20100415

REACTIONS (9)
  - ARTHRALGIA [None]
  - DEPRESSION [None]
  - FLUID RETENTION [None]
  - GAIT DISTURBANCE [None]
  - GASTRIC DILATATION [None]
  - NO THERAPEUTIC RESPONSE [None]
  - PAIN IN EXTREMITY [None]
  - VAGINAL HAEMORRHAGE [None]
  - WEIGHT INCREASED [None]
